FAERS Safety Report 20730112 (Version 2)
Quarter: 2022Q2

REPORT INFORMATION
  Report Type: Spontaneous
  Country: AU (occurrence: AU)
  Receive Date: 20220420
  Receipt Date: 20220504
  Transmission Date: 20220721
  Serious: Yes (Hospitalization)
  Sender: FDA-Public Use
  Company Number: AU-BAYER-2022A043464

PATIENT
  Age: 35 Year
  Sex: Female

DRUGS (1)
  1. ADEMPAS [Suspect]
     Active Substance: RIOCIGUAT
     Indication: Pulmonary hypertension
     Dosage: 2.5 MG, TID
     Route: 048
     Dates: end: 202204

REACTIONS (3)
  - Gastrointestinal disorder [Unknown]
  - Intestinal haemorrhage [None]
  - Surgery [None]

NARRATIVE: CASE EVENT DATE: 20220301
